FAERS Safety Report 7465038-9 (Version None)
Quarter: 2011Q2

REPORT INFORMATION
  Report Type: 
  Country: None (occurrence: None)
  Receive Date: 20110505
  Receipt Date: 20110505
  Transmission Date: 20111010
  Serious: Yes (Other)
  Sender: FDA-Public Use
  Company Number: None

PATIENT
  Age: 79 Year
  Sex: Male
  Weight: 90.5 kg

DRUGS (5)
  1. ONE TOUCH ULTRA TEST (BLOOD SUGAR DIAGNOSTIC) STRIP [Concomitant]
  2. FOLIC ACID [Concomitant]
  3. VICTOZA [Suspect]
     Indication: TYPE 2 DIABETES MELLITUS
     Dosage: 0.6MG QD SQ
     Route: 058
     Dates: start: 20110404, end: 20110418
  4. HYDROCHLOROTHIAZIDE [Concomitant]
  5. PIOGLITAZONE [Concomitant]

REACTIONS (2)
  - HEADACHE [None]
  - ABDOMINAL PAIN [None]
